FAERS Safety Report 9795717 (Version 1)
Quarter: 2014Q1

REPORT INFORMATION
  Report Type: Spontaneous
  Country: US (occurrence: US)
  Receive Date: 20140103
  Receipt Date: 20140103
  Transmission Date: 20141002
  Serious: No
  Sender: FDA-Public Use
  Company Number: US-009507513-1401USA000172

PATIENT
  Age: 18 Year
  Sex: Female
  Weight: 72.56 kg

DRUGS (4)
  1. NEXPLANON [Suspect]
     Indication: CONTRACEPTION
     Dosage: UNK
     Route: 059
     Dates: start: 20131029
  2. LITHIUM [Concomitant]
  3. FLUOXETINE [Concomitant]
  4. CLARITIN [Concomitant]

REACTIONS (2)
  - Rash generalised [Unknown]
  - Rash pruritic [Unknown]
